FAERS Safety Report 8500105-X (Version None)
Quarter: 2012Q3

REPORT INFORMATION
  Report Type: 
  Country: None (occurrence: None)
  Receive Date: 20120710
  Receipt Date: 20120702
  Transmission Date: 20120928
  Serious: Yes (Hospitalization, Disabling)
  Sender: FDA-Public Use
  Company Number: US-BAYER-2012-062571

PATIENT
  Age: 26 Year
  Sex: Female
  Weight: 52.154 kg

DRUGS (4)
  1. EPIPEN [Concomitant]
  2. CHLORPHEN.MA.W/PHENYLEPH.HCL/DEX.METHORP.HBR [Concomitant]
     Route: 048
  3. YAZ [Suspect]
     Indication: CONTRACEPTION
     Dosage: UNK
     Dates: start: 20080801, end: 20110505
  4. AMOXICILLIN [Concomitant]
     Dosage: 500 MG, UNK
     Route: 048

REACTIONS (8)
  - OEDEMA PERIPHERAL [None]
  - ABASIA [None]
  - DEEP VEIN THROMBOSIS [None]
  - ANXIETY [None]
  - PAIN [None]
  - ANHEDONIA [None]
  - PAIN IN EXTREMITY [None]
  - INJURY [None]
